FAERS Safety Report 18543986 (Version 1)
Quarter: 2020Q4

REPORT INFORMATION
  Report Type: Report from Study
  Country: None (occurrence: CH)
  Receive Date: 20201124
  Receipt Date: 20201124
  Transmission Date: 20210114
  Serious: Yes (Hospitalization)
  Sender: FDA-Public Use
  Company Number: CH-ABBVIE-20K-151-3653714-00

PATIENT
  Age: 78 Year
  Sex: Male

DRUGS (3)
  1. DUODOPA [Suspect]
     Active Substance: CARBIDOPA\LEVODOPA
     Indication: PARKINSON^S DISEASE
     Route: 050
     Dates: start: 20191217, end: 20191231
  2. DUODOPA [Suspect]
     Active Substance: CARBIDOPA\LEVODOPA
     Dosage: MD 3.0ML, CRD 3.0ML/H, CRN 1.3ML/H, ED 0.5ML; 24H THERAPY
     Route: 050
     Dates: start: 20191231, end: 20200427
  3. DUODOPA [Suspect]
     Active Substance: CARBIDOPA\LEVODOPA
     Dosage: MD 3.0ML, CRD 4.0ML/H, CRN 1.5ML/H, ED 0.5ML; 24H THERAPY
     Route: 050
     Dates: start: 20200427

REACTIONS (6)
  - Device dislocation [Recovered/Resolved]
  - Prostatic operation [Recovered/Resolved]
  - Abnormal dreams [Recovered/Resolved]
  - Wrong technique in device usage process [Unknown]
  - Device dislocation [Recovered/Resolved]
  - Device occlusion [Recovered/Resolved]

NARRATIVE: CASE EVENT DATE: 202010
